FAERS Safety Report 4518053-9 (Version None)
Quarter: 2004Q4

REPORT INFORMATION
  Report Type: 
  Country: None (occurrence: None)
  Receive Date: 20041130
  Receipt Date: 20041124
  Transmission Date: 20050328
  Serious: Yes (Death, Hospitalization)
  Sender: FDA-Public Use
  Company Number: 2004-122637-NL

PATIENT
  Age: 24 Year
  Sex: Male

DRUGS (3)
  1. NANDROLONE DECANOATE [Suspect]
     Dosage: DF
  2. SUSTANON [Suspect]
     Dosage: DF
  3. TESTOSTERONE UNDECANOATE [Suspect]
     Dosage: DF

REACTIONS (8)
  - APHASIA [None]
  - BLOOD HOMOCYSTEINE INCREASED [None]
  - CAROTID ARTERY OCCLUSION [None]
  - CEREBRAL INFARCTION [None]
  - HEMIPARESIS [None]
  - INTRACRANIAL VENOUS SINUS THROMBOSIS [None]
  - LOSS OF CONSCIOUSNESS [None]
  - TRANSVERSE SINUS THROMBOSIS [None]
